FAERS Safety Report 8464494-7 (Version None)
Quarter: 2012Q2

REPORT INFORMATION
  Report Type: 
  Country: None (occurrence: None)
  Receive Date: 20120626
  Receipt Date: 20120615
  Transmission Date: 20120825
  Serious: Yes (Hospitalization, Other)
  Sender: FDA-Public Use
  Company Number: FI-BRISTOL-MYERS SQUIBB COMPANY-16628323

PATIENT
  Age: 70 Year
  Sex: Female

DRUGS (10)
  1. MIRTAZAPINE [Concomitant]
  2. LEVOTHYROXINE SODIUM [Concomitant]
  3. NALTREXONE HYDROCHLORIDE [Concomitant]
  4. ORENCIA [Suspect]
     Indication: RHEUMATOID ARTHRITIS
     Dosage: SUBSEQUENT INF:07APR11,21APR11 17JUN11 14JUL11,
     Dates: start: 20110325, end: 20110811
  5. FOLVITE [Concomitant]
     Dosage: ALSO TAKEN 1 MG WEEKLY
  6. PANTOPRAZOLE [Concomitant]
  7. CITALOPRAM HYDROBROMIDE [Concomitant]
  8. WARFARIN SODIUM [Concomitant]
  9. CALCICHEW D3 [Concomitant]
  10. OXIKLORIN [Concomitant]

REACTIONS (1)
  - PULMONARY EMBOLISM [None]
